FAERS Safety Report 21391555 (Version 1)
Quarter: 2022Q3

REPORT INFORMATION
  Report Type: Spontaneous
  Country: US (occurrence: US)
  Receive Date: 20220929
  Receipt Date: 20220929
  Transmission Date: 20221027
  Serious: No
  Sender: FDA-Public Use
  Company Number: US-PERRIGO-22US011111

PATIENT
  Sex: Female

DRUGS (1)
  1. NASONEX [Suspect]
     Active Substance: MOMETASONE FUROATE
     Indication: Nasal disorder
     Dosage: UNKNOWN, UNKNOWN
     Route: 045
     Dates: start: 202208

REACTIONS (3)
  - Nasal discomfort [Unknown]
  - Nasal ulcer [Unknown]
  - Headache [Unknown]

NARRATIVE: CASE EVENT DATE: 20220801
